FAERS Safety Report 9833323 (Version 2)
Quarter: 2014Q1

REPORT INFORMATION
  Report Type: Spontaneous
  Country: US (occurrence: US)
  Receive Date: 20140121
  Receipt Date: 20140203
  Transmission Date: 20141002
  Serious: Yes (Hospitalization, Other)
  Sender: FDA-Public Use
  Company Number: US-GILEAD-2014-0092618

PATIENT
  Age: 69 Year
  Sex: Female

DRUGS (3)
  1. LETAIRIS [Suspect]
     Indication: PRODUCT USED FOR UNKNOWN INDICATION
     Dosage: 10 MG, UNK
     Route: 065
     Dates: start: 20091124
  2. LETAIRIS [Suspect]
     Dosage: 10 MG, QD
     Route: 065
     Dates: start: 20130416
  3. TYVASO [Concomitant]

REACTIONS (2)
  - Pneumonia [Unknown]
  - Dyspnoea [Unknown]
